FAERS Safety Report 7411920 (Version 3)
Quarter: 2012Q4

REPORT INFORMATION
  Report Type: 
  Country: BR (occurrence: BR)
  Receive Date: 20100607
  Receipt Date: 20121005
  Transmission Date: 20130627
  Serious: Yes (Other)
  Sender: FDA-Public Use
  Company Number: BR-ROCHE-706251

PATIENT
  Age: 19 None
  Sex: Male
  Weight: 97 kg

DRUGS (4)
  1. ROACUTAN [Suspect]
     Indication: ACNE
     Route: 048
     Dates: start: 200712, end: 200805
  2. BACTRIM [Suspect]
     Indication: ACNE
     Route: 065
  3. VISCOTEARS [Concomitant]
     Indication: DRY EYE
     Dosage: ROUTE: TOPIC (EYE DROPS)
     Route: 061
  4. COCOA BUTTER [Concomitant]
     Indication: LIP DRY
     Route: 061

REACTIONS (16)
  - Infarction [Recovering/Resolving]
  - Basal ganglia infarction [Unknown]
  - Dry eye [Recovered/Resolved]
  - Ocular hyperaemia [Unknown]
  - Lip dry [Unknown]
  - Acne [Not Recovered/Not Resolved]
  - Weight increased [Unknown]
  - Insomnia [Not Recovered/Not Resolved]
  - Dry skin [Unknown]
  - Dengue fever [Recovered/Resolved]
  - Nausea [Recovered/Resolved]
  - Weight decreased [Recovered/Resolved]
  - Decreased appetite [Recovered/Resolved]
  - Headache [Unknown]
  - Staphylococcal infection [Unknown]
  - Dry mouth [Not Recovered/Not Resolved]
